FAERS Safety Report 4523593-2 (Version None)
Quarter: 2004Q4

REPORT INFORMATION
  Report Type: 
  Country: None (occurrence: None)
  Receive Date: 20041117
  Receipt Date: 20040728
  Transmission Date: 20050328
  Serious: Yes (Hospitalization)
  Sender: FDA-Public Use
  Company Number: DE-JNJFOC-20040800214

PATIENT
  Age: 79 Year
  Sex: Male

DRUGS (18)
  1. LEVOFLOXACIN [Suspect]
     Indication: PNEUMONIA
     Dosage: INTRAVENOUS
     Route: 042
     Dates: start: 20030805, end: 20030808
  2. LEVOFLOXACIN [Suspect]
     Indication: PNEUMONIA
     Dosage: ORAL
     Route: 048
     Dates: start: 20030809, end: 20030816
  3. RISPERDAL [Concomitant]
  4. TRIAMCINOLONE [Concomitant]
  5. SIMVASTATIN [Concomitant]
  6. ALBUTEROL [Concomitant]
  7. CARBAMEZEPINE (CARBAMAZEPINE) [Concomitant]
  8. DOCUSATE SODIUM (DOCUSATE SODIUM) [Concomitant]
  9. FLUNISOLIDE (FLUNISOLIDE) [Concomitant]
  10. FUROSEMIDE [Concomitant]
  11. GATIFLOXACIN [Concomitant]
  12. HEPARIN SODIUM [Concomitant]
  13. IPRATROPIUM BROMIDE [Concomitant]
  14. ISOSORBIDE DINITRATE [Concomitant]
  15. LORATADINE [Concomitant]
  16. PAROXETINE (PAROXETINE) [Concomitant]
  17. RABEPRAZOLE SODIUM [Concomitant]
  18. IRBESARTAN [Concomitant]

REACTIONS (2)
  - CHRONIC OBSTRUCTIVE AIRWAYS DISEASE EXACERBATED [None]
  - GASTROENTERITIS [None]
